FAERS Safety Report 19074370 (Version 1)
Quarter: 2021Q1

REPORT INFORMATION
  Report Type: Spontaneous
  Country: EG (occurrence: EG)
  Receive Date: 20210330
  Receipt Date: 20210330
  Transmission Date: 20210420
  Serious: Yes (Other)
  Sender: FDA-Public Use
  Company Number: NVSC2020EG345559

PATIENT
  Age: 61 Year
  Sex: Female
  Weight: 43 kg

DRUGS (3)
  1. OXALIPLATIN EBEWE [Suspect]
     Active Substance: OXALIPLATIN
     Indication: OESOPHAGEAL CARCINOMA
     Dosage: UNK (STREGTH 100 MG)
     Route: 042
  2. OXALIPLATIN EBEWE [Suspect]
     Active Substance: OXALIPLATIN
     Dosage: 130 MG/M2 EVERY 2 DAYS (STRENGTH 50 MG)
     Route: 042
     Dates: start: 20201021, end: 20201203
  3. XELODA [Concomitant]
     Active Substance: CAPECITABINE
     Indication: OESOPHAGEAL CARCINOMA
     Dosage: 1000 MG/M2, Q12H (FOR 14 DAYS)
     Route: 048

REACTIONS (2)
  - Dyspnoea [Recovered/Resolved]
  - Product use in unapproved indication [Unknown]

NARRATIVE: CASE EVENT DATE: 20201119
